FAERS Safety Report 9287015 (Version 1)
Quarter: 2013Q2

REPORT INFORMATION
  Report Type: Spontaneous
  Country: US (occurrence: None)
  Receive Date: 20130508
  Receipt Date: 20130508
  Transmission Date: 20140414
  Serious: Yes (Other)
  Sender: FDA-Public Use
  Company Number: PIN-2013-00009

PATIENT
  Age: 81 Year
  Sex: Male

DRUGS (3)
  1. PHOTOFRIN [Suspect]
     Indication: BARRETT^S OESOPHAGUS
  2. NITROGEN [Suspect]
     Indication: BARRETT^S OESOPHAGUS
     Dates: end: 2006
  3. LANSOPRAZOLE [Concomitant]

REACTIONS (2)
  - Oesophageal squamous cell carcinoma [None]
  - Oesophageal stenosis [None]
